FAERS Safety Report 4666556-9 (Version None)
Quarter: 2005Q2

REPORT INFORMATION
  Report Type: 
  Country: None (occurrence: None)
  Receive Date: 20050517
  Receipt Date: 20050428
  Transmission Date: 20051028
  Serious: Yes (Other)
  Sender: FDA-Public Use
  Company Number: USA050496856

PATIENT
  Age: 63 Year
  Sex: Female

DRUGS (2)
  1. GEMZAR [Suspect]
     Indication: BREAST CANCER METASTATIC
     Dosage: 1200 MG
     Dates: start: 20050103
  2. HERCEPTIN [Concomitant]

REACTIONS (2)
  - NEOPLASM MALIGNANT [None]
  - PLEURAL EFFUSION [None]
